FAERS Safety Report 6061905-1 (Version None)
Quarter: 2009Q1

REPORT INFORMATION
  Report Type: 
  Country: None (occurrence: None)
  Receive Date: 20090202
  Receipt Date: 20090122
  Transmission Date: 20090719
  Serious: Yes (Other)
  Sender: FDA-Public Use
  Company Number: PHHY2009GB01732

PATIENT
  Sex: Female
  Weight: 70 kg

DRUGS (9)
  1. ACLASTA [Suspect]
     Indication: OSTEOPOROSIS
     Dosage: 5 MG
     Dates: start: 20081127
  2. ENOXAPARIN SODIUM [Concomitant]
     Indication: THROMBOSIS PROPHYLAXIS
     Dosage: UNK
     Route: 058
  3. CYCLOPHOSPHAMIDE [Concomitant]
     Indication: LUPUS NEPHRITIS
     Dosage: 750 MG/MONTH
     Route: 042
  4. METHYLPREDNISOLONE [Concomitant]
     Indication: LUPUS NEPHRITIS
     Dosage: 1 G/MONTH
     Route: 042
  5. BUMETANIDE [Concomitant]
     Indication: FLUID OVERLOAD
     Dosage: 6 MG/DAY
     Route: 048
  6. METOLAZONE [Concomitant]
     Indication: FLUID OVERLOAD
     Dosage: 2.5 MG/DAY
     Route: 048
  7. LOSARTAN [Concomitant]
     Indication: BLOOD PRESSURE INCREASED
     Dosage: 100 MG/DAY
     Route: 048
  8. RAMIPRIL [Concomitant]
     Dosage: 10 MG/DAY
     Route: 048
  9. PREDNISOLONE [Concomitant]
     Dosage: 15 MG/DAY
     Route: 048

REACTIONS (3)
  - EPISTAXIS [None]
  - HYPOCALCAEMIA [None]
  - THROMBOCYTOPENIA [None]
